FAERS Safety Report 6759440-8 (Version None)
Quarter: 2010Q2

REPORT INFORMATION
  Report Type: 
  Country: None (occurrence: None)
  Receive Date: 20100603
  Receipt Date: 20100522
  Transmission Date: 20101027
  Serious: Yes (Other)
  Sender: FDA-Public Use
  Company Number: 2010AP001094

PATIENT
  Age: 57 Year
  Sex: Male

DRUGS (1)
  1. SOTALOL HCL [Suspect]
     Indication: ATRIAL FIBRILLATION
     Dosage: 120 MG; BID;

REACTIONS (4)
  - BALANCE DISORDER [None]
  - DIZZINESS [None]
  - ELECTROCARDIOGRAM QT PROLONGED [None]
  - VESTIBULAR DISORDER [None]
